FAERS Safety Report 16778774 (Version 2)
Quarter: 2019Q3

REPORT INFORMATION
  Report Type: Spontaneous
  Country: EG (occurrence: EG)
  Receive Date: 20190906
  Receipt Date: 20190919
  Transmission Date: 20191005
  Serious: Yes (Other)
  Sender: FDA-Public Use
  Company Number: EG-SA-2019SA238678

PATIENT
  Age: 64 Year
  Sex: Male

DRUGS (6)
  1. IRINOTECAN [Concomitant]
     Active Substance: IRINOTECAN
     Dosage: UNK UNK, UNK
     Route: 065
  2. ELOXATIN [Suspect]
     Active Substance: OXALIPLATIN
     Dosage: 135 MG, QCY
     Route: 065
  3. ELOXATIN [Suspect]
     Active Substance: OXALIPLATIN
     Indication: COLON CANCER
     Dosage: 150 MG
     Route: 065
  4. 5 FU [Concomitant]
     Active Substance: FLUOROURACIL
     Dosage: UNK UNK, UNK
     Route: 065
  5. ELOXATIN [Suspect]
     Active Substance: OXALIPLATIN
     Dosage: 140 MG
     Route: 065
  6. VECTIBIX [Concomitant]
     Active Substance: PANITUMUMAB
     Dosage: UNK UNK, UNK
     Route: 065

REACTIONS (3)
  - Parosmia [Recovered/Resolved]
  - Anaphylactic shock [Recovered/Resolved]
  - Taste disorder [Recovered/Resolved]
